FAERS Safety Report 7421748-0 (Version None)
Quarter: 2011Q2

REPORT INFORMATION
  Report Type: 
  Country: None (occurrence: None)
  Receive Date: 20110418
  Receipt Date: 20110301
  Transmission Date: 20111010
  Serious: Yes (Death)
  Sender: FDA-Public Use
  Company Number: GB-KINGPHARMUSA00001-K201100439

PATIENT
  Sex: Female
  Weight: 49.89 kg

DRUGS (8)
  1. COCAINE [Suspect]
  2. MARIJUANA [Suspect]
  3. AVINZA [Suspect]
  4. VENLAFAXINE HCL [Suspect]
  5. ALPRAZOLAM [Suspect]
  6. METHYLENEDIOXYMETHAMPHETAMINE [Suspect]
  7. DILAUDID [Suspect]
  8. CODEINE [Suspect]

REACTIONS (1)
  - MULTIPLE DRUG OVERDOSE [None]
